FAERS Safety Report 9862821 (Version 2)
Quarter: 2014Q1

REPORT INFORMATION
  Report Type: Spontaneous
  Country: JP (occurrence: JP)
  Receive Date: 20140203
  Receipt Date: 20140203
  Transmission Date: 20141002
  Serious: Yes (Hospitalization)
  Sender: FDA-Public Use
  Company Number: PHHY2013JP067314

PATIENT
  Age: 76 Year
  Sex: Male

DRUGS (3)
  1. DICLOFENAC [Suspect]
     Indication: RHEUMATOID ARTHRITIS
     Dosage: 50 MG
     Route: 048
     Dates: start: 2004
  2. METHYLPREDNISOLONE [Concomitant]
     Indication: RHEUMATOID ARTHRITIS
     Dosage: 2 MG
     Dates: start: 2004
  3. ACTARIT [Concomitant]
     Indication: RHEUMATOID ARTHRITIS
     Dosage: 200 MG
     Route: 048

REACTIONS (7)
  - Weight decreased [Unknown]
  - Large intestinal ulcer [Recovering/Resolving]
  - Small intestine ulcer [Recovering/Resolving]
  - Normochromic normocytic anaemia [Recovering/Resolving]
  - Haemoglobin decreased [Recovering/Resolving]
  - Gastric ulcer [Recovering/Resolving]
  - Gastrointestinal haemorrhage [Recovering/Resolving]
